FAERS Safety Report 5007938-5 (Version None)
Quarter: 2006Q2

REPORT INFORMATION
  Report Type: 
  Country: None (occurrence: None)
  Receive Date: 20060404
  Receipt Date: 20050214
  Transmission Date: 20061013
  Serious: Yes (Other)
  Sender: FDA-Public Use
  Company Number: 2005031163

PATIENT

DRUGS (2)
  1. GEODON [Suspect]
     Indication: ABNORMAL BEHAVIOUR
  2. CARBAMAZEPINE [Concomitant]

REACTIONS (1)
  - CONVULSION [None]
